FAERS Safety Report 8568560-7 (Version None)
Quarter: 2012Q3

REPORT INFORMATION
  Report Type: 
  Country: None (occurrence: None)
  Receive Date: 20120803
  Receipt Date: 20120517
  Transmission Date: 20120928
  Serious: No
  Sender: FDA-Public Use
  Company Number: US-ABBOTT-12P-163-0936268-00

PATIENT
  Sex: Male
  Weight: 84.898 kg

DRUGS (6)
  1. NIASPAN [Suspect]
     Indication: HIGH DENSITY LIPOPROTEIN DECREASED
     Route: 048
  2. OMNARIS [Concomitant]
     Indication: HYPERSENSITIVITY
  3. VITAMIN TAB [Concomitant]
     Indication: VITAMIN SUPPLEMENTATION
  4. METAMUCIL-2 [Concomitant]
     Indication: SUPPLEMENTATION THERAPY
  5. ANDROGEL [Concomitant]
     Indication: BLOOD TESTOSTERONE DECREASED
  6. ANTARA (MICRONIZED) [Concomitant]
     Indication: HYPERLIPIDAEMIA

REACTIONS (5)
  - HEADACHE [None]
  - RESTLESSNESS [None]
  - PARAESTHESIA [None]
  - FLUSHING [None]
  - ERYTHEMA [None]
